FAERS Safety Report 16915647 (Version 1)
Quarter: 2019Q4

REPORT INFORMATION
  Report Type: Spontaneous
  Country: US (occurrence: US)
  Receive Date: 20191013
  Receipt Date: 20191013
  Transmission Date: 20200122
  Serious: Yes (Other)
  Sender: FDA-Public Use
  Company Number: None

PATIENT
  Age: 54 Year
  Sex: Female
  Weight: 49.5 kg

DRUGS (1)
  1. SUBOXONE [Suspect]
     Active Substance: BUPRENORPHINE HYDROCHLORIDE\NALOXONE HYDROCHLORIDE
     Indication: PAIN MANAGEMENT

REACTIONS (4)
  - Hypertension [None]
  - Malaise [None]
  - Pain [None]
  - Bedridden [None]

NARRATIVE: CASE EVENT DATE: 20191010
